FAERS Safety Report 19677013 (Version 2)
Quarter: 2021Q3

REPORT INFORMATION
  Report Type: Report from Study
  Country: US (occurrence: US)
  Receive Date: 20210809
  Receipt Date: 20210921
  Transmission Date: 20211014
  Serious: No
  Sender: FDA-Public Use
  Company Number: US-KYOWAKIRIN-2021BKK013396

PATIENT

DRUGS (1)
  1. POTELIGEO [Suspect]
     Active Substance: MOGAMULIZUMAB-KPKC
     Indication: PRODUCT USED FOR UNKNOWN INDICATION
     Dosage: UNK
     Route: 065

REACTIONS (12)
  - Trigger finger [Unknown]
  - Gastric dilatation [Unknown]
  - Skin disorder [Unknown]
  - Ageusia [Unknown]
  - Somnolence [Unknown]
  - Pruritus [Unknown]
  - Anosmia [Unknown]
  - Decreased appetite [Unknown]
  - Nausea [Unknown]
  - Tinnitus [Unknown]
  - Fatigue [Unknown]
  - Hot flush [Unknown]
